FAERS Safety Report 6304818-X (Version None)
Quarter: 2009Q3

REPORT INFORMATION
  Report Type: 
  Country: None (occurrence: None)
  Receive Date: 20090811
  Receipt Date: 20090807
  Transmission Date: 20100115
  Serious: Yes (Death)
  Sender: FDA-Public Use
  Company Number: JP-ASTRAZENECA-2009AP03315

PATIENT
  Age: 7 Year
  Sex: Female
  Weight: 15 kg

DRUGS (8)
  1. XYLOCAINE VISCOUS [Suspect]
     Indication: MYOCLONIC EPILEPSY
     Route: 048
     Dates: start: 19970914
  2. XYLOCAINE VISCOUS [Suspect]
     Dosage: THE DOSE WAS INCREASED GRADUALLY TO 60 MG X 4 AND 120 MG X 1 PER DAY.
     Route: 048
     Dates: end: 20050119
  3. CERCINE [Concomitant]
     Indication: MYOCLONIC EPILEPSY
     Dosage: THE DOSE WAS INCREASED GRADUALLY TO 6 ML X 2 PER DAY.
     Route: 048
     Dates: start: 19970801, end: 20050119
  4. DEPAKENE [Concomitant]
     Indication: MYOCLONIC EPILEPSY
     Dosage: THE DOSE WAS INCREASED GRADUALLY FROM 0.6 ML X 4/DAY TO 2 ML X 4/DAY.
     Route: 048
     Dates: start: 19970817, end: 20050119
  5. XYLOCAINE 2% FOR INTRAVENOUS INJECTION [Concomitant]
     Indication: MYOCLONIC EPILEPSY
     Dosage: 2 ML/KG/HR FOR 24 HOURS.
     Route: 042
     Dates: start: 19970823, end: 19970914
  6. MYSTAN [Concomitant]
     Dosage: THE DOSE WAS INCREASED GRADUALLY FROM 2 MG X 2/DAY TO 3 MG X 2/DAY.
     Route: 048
     Dates: start: 20040129, end: 20050119
  7. BACLOFEN [Concomitant]
     Indication: SPASTIC PARALYSIS
     Route: 048
     Dates: end: 20050119
  8. MYONAL [Concomitant]
     Indication: SPASTIC PARALYSIS
     Route: 048
     Dates: end: 20050119

REACTIONS (1)
  - DEATH [None]
